FAERS Safety Report 9345478 (Version 5)
Quarter: 2013Q4

REPORT INFORMATION
  Report Type: Report from Study
  Country: JP (occurrence: JP)
  Receive Date: 20130613
  Receipt Date: 20131108
  Transmission Date: 20140711
  Serious: Yes (Hospitalization)
  Sender: FDA-Public Use
  Company Number: JP-009507513-1306JPN005058

PATIENT
  Age: 72 Year
  Sex: Female

DRUGS (13)
  1. RIBAVIRIN [Suspect]
     Indication: CHRONIC HEPATITIS C
     Dosage: 600 MG, QD
     Route: 048
     Dates: start: 20130410, end: 20130514
  2. RIBAVIRIN [Suspect]
     Dosage: 200 MG, UNK
     Route: 048
     Dates: start: 20130515, end: 20130520
  3. TELAPREVIR [Suspect]
     Indication: CHRONIC HEPATITIS C
     Dosage: 2250 MG, QD
     Route: 048
     Dates: start: 20130410, end: 20130514
  4. PEGINTERFERON ALFA-2A [Suspect]
     Indication: CHRONIC HEPATITIS C
     Dosage: 180 MICROGRAM, QW
     Route: 058
     Dates: start: 20130410, end: 20130515
  5. FOSAMAC TABLETS-5 [Concomitant]
     Dosage: UNK
     Route: 048
     Dates: end: 20130522
  6. MOBIC [Concomitant]
     Dosage: UNK
     Dates: end: 20130522
  7. BLOPRESS [Concomitant]
     Dosage: UNK
     Dates: start: 20070509, end: 20130522
  8. REBAMIPIDE [Concomitant]
     Dosage: UNK
     Dates: start: 20130412, end: 20130415
  9. ANTEBATE [Concomitant]
     Dosage: UNK
     Dates: start: 20130416
  10. OLOPATADINE HYDROCHLORIDE [Concomitant]
     Dosage: UNK
     Dates: start: 20130416, end: 20130522
  11. ALLOPURINOL [Concomitant]
     Dosage: UNK
     Dates: start: 20130417, end: 20130522
  12. CALONAL [Concomitant]
     Dosage: UNK
     Dates: start: 20130417
  13. LOXOPROFEN [Concomitant]
     Dosage: UNK
     Dates: end: 20130508

REACTIONS (2)
  - Interstitial lung disease [Recovered/Resolved]
  - Malaise [Recovered/Resolved]
